FAERS Safety Report 8832338 (Version 1)
Quarter: 2012Q4

REPORT INFORMATION
  Report Type: Report from Study
  Country: US (occurrence: US)
  Receive Date: 20121009
  Receipt Date: 20121009
  Transmission Date: 20130627
  Serious: Yes (Hospitalization, Other)
  Sender: FDA-Public Use
  Company Number: US-ABBOTT-12P-163-0990253-00

PATIENT
  Age: 30 Year
  Sex: Female

DRUGS (3)
  1. HUMIRA [Suspect]
     Indication: CROHN^S DISEASE
     Dates: start: 20120717, end: 20120717
  2. HUMIRA [Suspect]
     Dates: start: 20120731, end: 20120731
  3. HUMIRA [Suspect]
     Dates: start: 20120814, end: 20120814

REACTIONS (2)
  - Intestinal perforation [Unknown]
  - Abdominal pain [Unknown]
